FAERS Safety Report 6136972-7 (Version None)
Quarter: 2009Q1

REPORT INFORMATION
  Report Type: 
  Country: None (occurrence: None)
  Receive Date: 20090326
  Receipt Date: 20090326
  Transmission Date: 20090719
  Serious: Yes (Hospitalization)
  Sender: FDA-Public Use
  Company Number: None

PATIENT
  Sex: Male
  Weight: 14 kg

DRUGS (9)
  1. CYCLOPHOSPHAMIDE [Suspect]
     Dosage: 2555 MG
  2. DACTINOMYCIN [Suspect]
     Dosage: 630 MCG
  3. DOXORUBICIN HCL [Suspect]
     Dosage: 27 MG
  4. ETOPOSIDE [Suspect]
     Dosage: 582 MG
  5. VINCRISTINE SULFATE [Suspect]
     Dosage: 8.1 MG
  6. BACTRIM [Concomitant]
  7. MIRALAX [Concomitant]
  8. NEUPOGEN [Concomitant]
  9. ZOFRAN [Concomitant]

REACTIONS (8)
  - ABDOMINAL DISTENSION [None]
  - ABDOMINAL PAIN [None]
  - ASCITES [None]
  - GASTROINTESTINAL MOTILITY DISORDER [None]
  - MUSCLE SPASMS [None]
  - RESPIRATORY DISTRESS [None]
  - VENOOCCLUSIVE LIVER DISEASE [None]
  - WEIGHT INCREASED [None]
